FAERS Safety Report 16251071 (Version 1)
Quarter: 2019Q2

REPORT INFORMATION
  Report Type: Spontaneous
  Country: LB (occurrence: LB)
  Receive Date: 20190429
  Receipt Date: 20190429
  Transmission Date: 20190711
  Serious: Yes (Death, Other)
  Sender: FDA-Public Use
  Company Number: LB-BAYER-2019-080103

PATIENT
  Age: 34 Year
  Sex: Male

DRUGS (3)
  1. 5-AZACYTIDINE [Suspect]
     Active Substance: AZACITIDINE
     Indication: ACUTE MYELOID LEUKAEMIA
     Dosage: UNK
     Dates: start: 20171206
  2. VENETOCLAX. [Suspect]
     Active Substance: VENETOCLAX
     Dosage: UNK
     Dates: start: 20171206
  3. SORAFENIB (RAF KINASE INHIBITOR) [Suspect]
     Active Substance: SORAFENIB
     Indication: ACUTE MYELOID LEUKAEMIA
     Dosage: DAILY DOSE 400 MG
     Dates: start: 20171206

REACTIONS (8)
  - Respiratory distress [None]
  - Product use in unapproved indication [None]
  - Bone marrow failure [None]
  - Septic shock [Fatal]
  - Multiple organ dysfunction syndrome [Fatal]
  - Pneumonia cytomegaloviral [None]
  - Off label use [None]
  - Cytopenia [None]

NARRATIVE: CASE EVENT DATE: 20171206
